FAERS Safety Report 5816787-7 (Version None)
Quarter: 2008Q3

REPORT INFORMATION
  Report Type: 
  Country: None (occurrence: None)
  Receive Date: 20080721
  Receipt Date: 20080702
  Transmission Date: 20090109
  Serious: No
  Sender: FDA-Public Use
  Company Number: US-BOEHRINGER INGELHEIM GMBH, GERMANY-2008-BP-10454BP

PATIENT
  Age: 60 Year
  Sex: Male

DRUGS (5)
  1. MOBIC [Suspect]
     Route: 048
     Dates: end: 20080501
  2. FLECTOR PATCH [Suspect]
     Indication: PAIN
     Route: 061
     Dates: start: 20080501, end: 20080501
  3. FLECTOR PATCH [Suspect]
     Indication: ARTHRALGIA
  4. CELEBREX [Suspect]
     Indication: PAIN
     Route: 048
     Dates: end: 20080501
  5. MOTRIN [Suspect]
     Indication: PAIN
     Route: 048
     Dates: end: 20080501

REACTIONS (4)
  - ABDOMINAL PAIN [None]
  - GASTROENTERITIS VIRAL [None]
  - NAUSEA [None]
  - VOMITING [None]
